FAERS Safety Report 18643232 (Version 1)
Quarter: 2020Q4

REPORT INFORMATION
  Report Type: Not Available
  Country: None (occurrence: None)
  Receive Date: 20201221
  Receipt Date: 20201221
  Transmission Date: 20210114
  Serious: No
  Sender: FDA-Public Use
  Company Number: US-AKORN-158084

PATIENT
  Age: 80 Year
  Sex: Female

DRUGS (1)
  1. ALBUTEROL SULFATE INHALATION SOLUTION, 0.5% [Suspect]
     Active Substance: ALBUTEROL SULFATE

REACTIONS (1)
  - Palpitations [Unknown]
